FAERS Safety Report 9665358 (Version 1)
Quarter: 2013Q4

REPORT INFORMATION
  Report Type: Spontaneous
  Country: US (occurrence: US)
  Receive Date: 20131101
  Receipt Date: 20131101
  Transmission Date: 20140711
  Serious: No
  Sender: FDA-Public Use
  Company Number: US-ASTRAZENECA-2013SE78011

PATIENT
  Age: 66 Year
  Sex: Male
  Weight: 90.7 kg

DRUGS (2)
  1. CRESTOR [Suspect]
     Route: 048
  2. TUMS [Concomitant]
     Dosage: NOT SPECIFIED

REACTIONS (1)
  - Gastric pH decreased [Recovered/Resolved]
